FAERS Safety Report 18289478 (Version 2)
Quarter: 2020Q4

REPORT INFORMATION
  Report Type: Report from Study
  Country: GR (occurrence: GR)
  Receive Date: 20200921
  Receipt Date: 20201001
  Transmission Date: 20210113
  Serious: Yes (Hospitalization, Other)
  Sender: FDA-Public Use
  Company Number: GR-JNJFOC-20200927224

PATIENT

DRUGS (7)
  1. BRODALUMAB [Suspect]
     Active Substance: BRODALUMAB
     Indication: PSORIASIS
     Dosage: UNK
     Route: 065
  2. ADALIMUMAB [Suspect]
     Active Substance: ADALIMUMAB
     Indication: PSORIASIS
     Dosage: UNK
     Route: 065
  3. SECUKINUMAB. [Suspect]
     Active Substance: SECUKINUMAB
     Indication: PSORIASIS
     Dosage: UNK
     Route: 065
  4. STELARA [Suspect]
     Active Substance: USTEKINUMAB
     Indication: PSORIASIS
     Dosage: UNK
     Route: 058
  5. APREMILAST [Suspect]
     Active Substance: APREMILAST
     Indication: PSORIASIS
     Dosage: UNK
     Route: 065
  6. ETANERCEPT [Suspect]
     Active Substance: ETANERCEPT
     Indication: PSORIASIS
     Dosage: UNK
     Route: 065
  7. REMICADE [Suspect]
     Active Substance: INFLIXIMAB
     Indication: PSORIASIS
     Route: 042

REACTIONS (7)
  - Mucocutaneous candidiasis [Unknown]
  - Drug ineffective [Unknown]
  - Headache [Unknown]
  - Hepatic enzyme increased [Unknown]
  - Renal impairment [Unknown]
  - Lower respiratory tract infection [Unknown]
  - Hypersensitivity [Unknown]
